FAERS Safety Report 5371413-9 (Version None)
Quarter: 2007Q2

REPORT INFORMATION
  Report Type: 
  Country: None (occurrence: None)
  Receive Date: 20070622
  Receipt Date: 20070614
  Transmission Date: 20071010
  Serious: Yes (Hospitalization, Other)
  Sender: FDA-Public Use
  Company Number: 2007BI012999

PATIENT
  Age: 52 Year
  Sex: Male
  Weight: 92.0802 kg

DRUGS (4)
  1. AVONEX [Suspect]
     Indication: MULTIPLE SCLEROSIS
     Dosage: 30 UG;QW;IM
     Route: 030
     Dates: start: 19980201, end: 20030101
  2. AVONEX [Suspect]
     Indication: MULTIPLE SCLEROSIS
     Dosage: 30 UG;QW;IM
     Route: 030
     Dates: start: 20030101
  3. TYLENOL [Concomitant]
  4. BACLOFEN [Concomitant]

REACTIONS (4)
  - CONVULSION [None]
  - CYSTITIS [None]
  - FALL [None]
  - PROSTATE EXAMINATION ABNORMAL [None]
